FAERS Safety Report 7585656-7 (Version None)
Quarter: 2011Q2

REPORT INFORMATION
  Report Type: 
  Country: None (occurrence: None)
  Receive Date: 20110624
  Receipt Date: 20110610
  Transmission Date: 20111010
  Serious: Yes (Disabling)
  Sender: FDA-Public Use
  Company Number: AUR-APL-2011-02905

PATIENT
  Age: 65 Year
  Sex: Female

DRUGS (1)
  1. CITALOPRAM HYDROBROMIDE [Suspect]
     Indication: DEPRESSION
     Dosage: 0.5 DOSAGE FORMS,

REACTIONS (15)
  - FEELING OF DESPAIR [None]
  - SUICIDAL IDEATION [None]
  - EATING DISORDER [None]
  - PANIC ATTACK [None]
  - ANXIETY [None]
  - TREMOR [None]
  - DECREASED APPETITE [None]
  - ABDOMINAL DISCOMFORT [None]
  - DEPRESSION [None]
  - PANIC DISORDER [None]
  - SLEEP DISORDER [None]
  - HYPERHIDROSIS [None]
  - CONFUSIONAL STATE [None]
  - POLLAKIURIA [None]
  - MUSCLE SPASMS [None]
